FAERS Safety Report 25649311 (Version 1)
Quarter: 2025Q3

REPORT INFORMATION
  Report Type: Report from Study
  Country: CA (occurrence: CA)
  Receive Date: 20250806
  Receipt Date: 20250806
  Transmission Date: 20251021
  Serious: Yes (Hospitalization)
  Sender: ALEXION PHARMACEUTICALS
  Company Number: CA-AstraZeneca-2024A200537

PATIENT
  Age: 70 Year
  Sex: Female

DRUGS (3)
  1. CAPIVASERTIB [Suspect]
     Active Substance: CAPIVASERTIB
     Indication: Hormone receptor positive HER2 negative breast cancer
     Dosage: 400 MILLIGRAM, BID
     Dates: start: 20240822
  2. FASLODEX [Suspect]
     Active Substance: FULVESTRANT
     Indication: Hormone receptor positive HER2 negative breast cancer
     Dosage: 500 MILLIGRAM, UNK, FREQUENCY: Q4WK
     Dates: start: 20240822
  3. FASLODEX [Suspect]
     Active Substance: FULVESTRANT

REACTIONS (13)
  - Pyrexia [Unknown]
  - Illness [Unknown]
  - Chills [Unknown]
  - Rash macular [Unknown]
  - Drug hypersensitivity [Unknown]
  - Insomnia [Unknown]
  - Stomatitis [Unknown]
  - Erythema [Unknown]
  - Pruritus [Unknown]
  - Swelling [Unknown]
  - Fatigue [Unknown]
  - Rash [Unknown]
  - Contraindicated product administered [Unknown]

NARRATIVE: CASE EVENT DATE: 20240101
